FAERS Safety Report 6716374-2 (Version None)
Quarter: 2010Q2

REPORT INFORMATION
  Report Type: 
  Country: None (occurrence: None)
  Receive Date: 20100507
  Receipt Date: 20100428
  Transmission Date: 20101027
  Serious: Yes (Death, Life-Threatening)
  Sender: FDA-Public Use
  Company Number: JP-BAYER-200915384BYL

PATIENT
  Age: 75 Year
  Sex: Male
  Weight: 61 kg

DRUGS (8)
  1. NEXAVAR [Suspect]
     Indication: HEPATIC NEOPLASM MALIGNANT
     Dosage: TOTAL DAILY DOSE: 800 MG  UNIT DOSE: 200 MG
     Route: 048
     Dates: start: 20091208, end: 20091213
  2. TAKEPRON [Concomitant]
     Indication: GASTRIC ULCER
     Dosage: UNIT DOSE: 15 MG
     Route: 048
     Dates: start: 20070208, end: 20091215
  3. ZYLORIC [Concomitant]
     Indication: HYPERURICAEMIA
     Dosage: UNIT DOSE: 100 MG
     Route: 048
     Dates: start: 20090225, end: 20091215
  4. URSO 250 [Concomitant]
     Indication: CHRONIC HEPATITIS
     Dosage: UNIT DOSE: 100 MG
     Route: 048
     Dates: start: 20090313, end: 20091215
  5. GLYCYRON [Concomitant]
     Indication: CHRONIC HEPATITIS
     Route: 048
     Dates: start: 20090313, end: 20091215
  6. LASIX [Concomitant]
     Indication: HYPERTENSION
     Dosage: UNIT DOSE: 20 MG
     Route: 048
     Dates: start: 20080324, end: 20091215
  7. LIVACT [Concomitant]
     Indication: HYPOALBUMINAEMIA
     Dosage: UNIT DOSE: 4.15 G
     Route: 048
     Dates: start: 20091119, end: 20091215
  8. PYDOXAL [Concomitant]
     Indication: PROPHYLAXIS
     Dosage: UNIT DOSE: 30 MG
     Route: 048
     Dates: start: 20091202, end: 20091215

REACTIONS (3)
  - GUILLAIN-BARRE SYNDROME [None]
  - HEPATIC FAILURE [None]
  - SHOCK HAEMORRHAGIC [None]
